FAERS Safety Report 7787019-8 (Version None)
Quarter: 2011Q3

REPORT INFORMATION
  Report Type: 
  Country: None (occurrence: None)
  Receive Date: 20110927
  Receipt Date: 20110916
  Transmission Date: 20111222
  Serious: Yes (Hospitalization)
  Sender: FDA-Public Use
  Company Number: 1045320

PATIENT
  Sex: Male

DRUGS (4)
  1. VINBLASTINE SULFATE [Suspect]
     Indication: HODGKIN'S DISEASE
  2. ADRIAMYCIN PFS [Suspect]
     Indication: HODGKIN'S DISEASE
  3. DACARBAZINE [Suspect]
     Indication: HODGKIN'S DISEASE
  4. BLEOMYCIN SULFATE [Suspect]
     Indication: HODGKIN'S DISEASE

REACTIONS (3)
  - VASOGENIC CEREBRAL OEDEMA [None]
  - CYTOTOXIC OEDEMA [None]
  - STATUS EPILEPTICUS [None]
